FAERS Safety Report 6823702-6 (Version None)
Quarter: 2010Q3

REPORT INFORMATION
  Report Type: 
  Country: None (occurrence: None)
  Receive Date: 20100708
  Receipt Date: 20060827
  Transmission Date: 20110219
  Serious: No
  Sender: FDA-Public Use
  Company Number: US-PFIZER INC-2006105420

PATIENT
  Age: 60 Year
  Sex: Male
  Weight: 81.65 kg

DRUGS (3)
  1. CHANTIX [Suspect]
     Dates: start: 20060801
  2. PRILOSEC [Concomitant]
  3. ADVAIR DISKUS 100/50 [Concomitant]
     Indication: ASTHMA

REACTIONS (2)
  - FATIGUE [None]
  - NAUSEA [None]
